FAERS Safety Report 5444175-4 (Version None)
Quarter: 2007Q3

REPORT INFORMATION
  Report Type: 
  Country: None (occurrence: None)
  Receive Date: 20070906
  Receipt Date: 20070831
  Transmission Date: 20080115
  Serious: Yes (Death)
  Sender: FDA-Public Use
  Company Number: HQWYE956331AUG07

PATIENT

DRUGS (1)
  1. AMIODARONE [Suspect]
     Dosage: 150 MG IV BOLUS
     Dates: start: 20070817, end: 20070817

REACTIONS (1)
  - DEATH [None]
